FAERS Safety Report 6856863-3 (Version None)
Quarter: 2010Q3

REPORT INFORMATION
  Report Type: 
  Country: None (occurrence: None)
  Receive Date: 20100714
  Receipt Date: 20100706
  Transmission Date: 20110219
  Serious: No
  Sender: FDA-Public Use
  Company Number: 008755

PATIENT
  Age: 53 Year
  Sex: Male

DRUGS (12)
  1. PLETAAL (CILOSTAZOL) TABLET, 50 MG [Suspect]
     Indication: CEREBRAL INFARCTION
     Dosage: 50 MG, BID, ORAL; 50 MG, BID; ORAL
     Route: 048
     Dates: start: 20091207, end: 20091213
  2. PLETAAL (CILOSTAZOL) TABLET, 50 MG [Suspect]
     Indication: CEREBRAL INFARCTION
     Dosage: 50 MG, BID, ORAL; 50 MG, BID; ORAL
     Route: 048
     Dates: start: 20091214, end: 20091215
  3. TAKEPRON (LANSOPRAZOLE) TABLET, 15 MG [Suspect]
     Indication: ULCER
     Dosage: 15 MG, QD, ORAL
     Route: 048
     Dates: start: 20091201, end: 20091215
  4. ACETAMINOPHEN [Concomitant]
  5. LOXONIN (LOXOPROFEN SODIUM) [Concomitant]
  6. CRESTOR [Concomitant]
  7. EPADEL S (ETHYL ICOSAPENTATE) [Concomitant]
  8. TELEMINSOFT (BISACODYL) [Concomitant]
  9. PROHEPARUM (LIVER HYDROLYSATE COMBINED DRUG) [Concomitant]
  10. COLIOPAN (BUTROPIUM BROMIDE) [Concomitant]
  11. LAC-B (BIFIDOBACTERIUM) [Concomitant]
  12. MUCOSTA (REBAMIPIDE) [Concomitant]

REACTIONS (3)
  - LYMPHOCYTE COUNT DECREASED [None]
  - PYREXIA [None]
  - WHITE BLOOD CELL COUNT DECREASED [None]
